FAERS Safety Report 13540780 (Version 1)
Quarter: 2017Q2

REPORT INFORMATION
  Report Type: Spontaneous
  Country: US (occurrence: US)
  Receive Date: 20170512
  Receipt Date: 20170512
  Transmission Date: 20170830
  Serious: No
  Sender: FDA-Public Use
  Company Number: US-TAKEDA-2017TUS010051

PATIENT
  Age: 37 Year
  Sex: Female

DRUGS (2)
  1. TRINTELLIX [Suspect]
     Active Substance: VORTIOXETINE HYDROBROMIDE
     Indication: PRODUCT USED FOR UNKNOWN INDICATION
     Dosage: 5 MG, UNK
     Route: 065
  2. TRINTELLIX [Suspect]
     Active Substance: VORTIOXETINE HYDROBROMIDE
     Dosage: 10 MG, UNK
     Route: 065

REACTIONS (17)
  - Anxiety [Unknown]
  - Dizziness [Unknown]
  - Headache [Unknown]
  - Weight decreased [Unknown]
  - Anger [Unknown]
  - Fatigue [Unknown]
  - Diarrhoea [Unknown]
  - Nausea [Unknown]
  - Irritability [Unknown]
  - Feeling abnormal [Unknown]
  - Disturbance in attention [Unknown]
  - Apathy [Unknown]
  - Hyperhidrosis [Unknown]
  - Feeling guilty [Unknown]
  - Weight increased [Unknown]
  - Asthenia [Unknown]
  - Mood swings [Unknown]

NARRATIVE: CASE EVENT DATE: 20160831
